FAERS Safety Report 8156638-1 (Version None)
Quarter: 2012Q1

REPORT INFORMATION
  Report Type: 
  Country: None (occurrence: None)
  Receive Date: 20120222
  Receipt Date: 20120213
  Transmission Date: 20120608
  Serious: Yes (Hospitalization)
  Sender: FDA-Public Use
  Company Number: PHHY2012IT012949

PATIENT
  Sex: Male

DRUGS (2)
  1. ATENOLOL [Suspect]
  2. ALLOPURINOL [Suspect]

REACTIONS (1)
  - ABDOMINAL PAIN [None]
